FAERS Safety Report 8764700 (Version 1)
Quarter: 2012Q4

REPORT INFORMATION
  Report Type: 
  Country: BR (occurrence: BR)
  Receive Date: 20120831
  Receipt Date: 20120831
  Transmission Date: 20130627
  Serious: Yes (Other)
  Sender: FDA-Public Use
  Company Number: BR-PFIZER INC-2012209692

PATIENT
  Age: 45 Year
  Sex: Female

DRUGS (5)
  1. XALACOM [Suspect]
     Indication: GLAUCOMA
     Dosage: one drop in each eye, once daily
     Dates: start: 2006
  2. ALPRAZOLAM [Suspect]
     Indication: INSOMNIA
     Dosage: 1 mg (one tablet), 1x/day
     Dates: start: 201102
  3. GLIFAGE [Concomitant]
     Indication: DIABETES PROPHYLAXIS
     Dosage: UNK
     Dates: start: 2011
  4. MOTILIUM ^JANSSEN-CILAG^ [Concomitant]
     Indication: RETCHING
     Dosage: UNK
     Dates: start: 2011
  5. OMEPRAZOLE [Concomitant]
     Indication: GASTRIC DISORDER
     Dosage: UNK
     Dates: start: 2011

REACTIONS (3)
  - Arthropathy [Unknown]
  - Joint lock [Unknown]
  - Fall [Unknown]
